FAERS Safety Report 18665810 (Version 1)
Quarter: 2020Q4

REPORT INFORMATION
  Report Type: Spontaneous
  Country: DE (occurrence: DE)
  Receive Date: 20201226
  Receipt Date: 20201226
  Transmission Date: 20210114
  Serious: Yes (Hospitalization)
  Sender: FDA-Public Use
  Company Number: DE-TEVA-2020-DE-1861223

PATIENT
  Age: 50 Year
  Sex: Female

DRUGS (12)
  1. BISOPROLOL [Concomitant]
     Active Substance: BISOPROLOL
     Dosage: 2.5 MILLIGRAM DAILY; 1-0-0-0,
  2. CARBIMAZOL [Suspect]
     Active Substance: CARBIMAZOLE
     Dosage: 40 MILLIGRAM DAILY; 10 MG, 4-0-0-0
     Route: 065
  3. MAGNESIUM [Concomitant]
     Active Substance: MAGNESIUM
     Dosage: 600 MILLIGRAM DAILY; 300 MG, 1-0-1-0
  4. COLECALCIFEROL (VITAMIN D) [Concomitant]
     Active Substance: CHOLECALCIFEROL
     Dosage: 20,000 IU / WEEK, 1X,
  5. PANTOPRAZOL [Concomitant]
     Active Substance: PANTOPRAZOLE SODIUM
     Dosage: 40 MILLIGRAM DAILY; 1-0-0-0,
  6. ALENDRONSAURE [Concomitant]
     Active Substance: ALENDRONIC ACID
     Dosage: 70 MG / WEEK, 1X,
  7. DABIGATRAN [Concomitant]
     Active Substance: DABIGATRAN
     Dosage: 220 MILLIGRAM DAILY; 1-0-1-0
  8. AMIODARON [Suspect]
     Active Substance: AMIODARONE
     Dosage: 200 MG, BREAK,
     Route: 065
  9. NATRIUMPERCHLORAT [Suspect]
     Active Substance: SODIUM PERCHLORATE
     Dosage: 1-1-1-0, DROPS, UNIT DOSE:3 DOSAGE FORMS
     Route: 065
  10. CALCIUM [Concomitant]
     Active Substance: CALCIUM
     Dosage: 500 MILLIGRAM DAILY; 1-0-0-0,
  11. RAMIPRIL. [Concomitant]
     Active Substance: RAMIPRIL
     Dosage: 2.5 MILLIGRAM DAILY; 1-0-0-0
  12. TORASEMID [Concomitant]
     Active Substance: TORSEMIDE
     Dosage: 10 MG, 1-0.5-0-0,  UNIT DOSE: 15 MG

REACTIONS (2)
  - Hypotension [Unknown]
  - Chest discomfort [Unknown]
